FAERS Safety Report 19773391 (Version 1)
Quarter: 2021Q3

REPORT INFORMATION
  Report Type: Spontaneous
  Country: FI (occurrence: FI)
  Receive Date: 20210901
  Receipt Date: 20210901
  Transmission Date: 20211014
  Serious: Yes (Hospitalization, Other)
  Sender: FDA-Public Use
  Company Number: FI-PFIZER INC-202101072601

PATIENT
  Age: 64 Year
  Sex: Female
  Weight: 60 kg

DRUGS (13)
  1. FLUCONAZOL [Concomitant]
     Active Substance: FLUCONAZOLE
     Dates: start: 20210609
  2. NYSTATINE [Concomitant]
     Active Substance: NYSTATIN
     Dates: start: 20210608, end: 20210611
  3. RITUXIMAB. [Suspect]
     Active Substance: RITUXIMAB
     Dosage: 375 MG/M2, SINGLE
     Route: 042
     Dates: start: 20210525, end: 20210525
  4. PREDNISOLONE. [Suspect]
     Active Substance: PREDNISOLONE
     Indication: CYTOKINE RELEASE SYNDROME
     Dosage: 100 MG, DAILY
     Route: 048
     Dates: start: 20210525, end: 20210528
  5. INNOHEP [Concomitant]
     Active Substance: TINZAPARIN SODIUM
     Dates: start: 20210318
  6. PARACETAMOL [Concomitant]
     Active Substance: ACETAMINOPHEN
     Dosage: UNK
     Dates: start: 20210626
  7. RITUXIMAB. [Suspect]
     Active Substance: RITUXIMAB
     Dosage: 375 MG/M2, SINGLE
     Route: 042
     Dates: start: 20210601, end: 20210601
  8. EPCORITAMAB. [Suspect]
     Active Substance: EPCORITAMAB
     Indication: FOLLICULAR LYMPHOMA STAGE III
     Dosage: PRIMING DOSE: 0.16, SINGLE
     Route: 058
     Dates: start: 20210525, end: 20210525
  9. EPCORITAMAB. [Suspect]
     Active Substance: EPCORITAMAB
     Dosage: INTERMEDIATE DOSE: 0.8, SINGLE
     Route: 058
     Dates: start: 20210601, end: 20210601
  10. LENALIDOMIDE [Suspect]
     Active Substance: LENALIDOMIDE
     Indication: FOLLICULAR LYMPHOMA STAGE III
     Dosage: 20 MG, DAILY
     Route: 048
     Dates: start: 20210525, end: 20210601
  11. PARACETAMOL [Concomitant]
     Active Substance: ACETAMINOPHEN
     Dosage: 1 G, DAILY
     Route: 048
     Dates: start: 20210601, end: 20210601
  12. CETIRIZINE [Concomitant]
     Active Substance: CETIRIZINE HYDROCHLORIDE
     Dosage: 10 MG
     Route: 048
     Dates: start: 20210601, end: 20210601
  13. VALACICLOVIR [Concomitant]
     Active Substance: VALACYCLOVIR HYDROCHLORIDE
     Dates: start: 20210609

REACTIONS (3)
  - Cytokine release syndrome [Recovered/Resolved]
  - Mania [Recovered/Resolved]
  - C-reactive protein increased [Unknown]

NARRATIVE: CASE EVENT DATE: 20210605
